FAERS Safety Report 6329770-2 (Version None)
Quarter: 2009Q3

REPORT INFORMATION
  Report Type: 
  Country: None (occurrence: None)
  Receive Date: 20090826
  Receipt Date: 20090814
  Transmission Date: 20100115
  Serious: Yes (Hospitalization)
  Sender: FDA-Public Use
  Company Number: PHHY2009NO34367

PATIENT
  Sex: Female

DRUGS (2)
  1. RITALIN [Suspect]
     Route: 048
  2. RITALIN [Concomitant]

REACTIONS (5)
  - DEHYDRATION [None]
  - GASTROINTESTINAL INFECTION [None]
  - HEART RATE INCREASED [None]
  - RASH GENERALISED [None]
  - TACHYCARDIA [None]
